FAERS Safety Report 10431733 (Version 1)
Quarter: 2014Q3

REPORT INFORMATION
  Report Type: Spontaneous
  Country: FR (occurrence: FR)
  Receive Date: 20140904
  Receipt Date: 20140904
  Transmission Date: 20150326
  Serious: Yes (Hospitalization)
  Sender: FDA-Public Use
  Company Number: FR-MYLANLABS-2014M1002434

PATIENT

DRUGS (1)
  1. CLARITHROMYCINE MYLAN 25 MG/ML, GRANUL?S POUR SUSPENSION BUVABLE [Suspect]
     Active Substance: CLARITHROMYCIN
     Indication: PRODUCT USED FOR UNKNOWN INDICATION

REACTIONS (2)
  - Product reconstitution issue [Unknown]
  - Abscess [Unknown]
